FAERS Safety Report 10279790 (Version 2)
Quarter: 2014Q3

REPORT INFORMATION
  Report Type: Report from Study
  Country: CA (occurrence: CA)
  Receive Date: 20140707
  Receipt Date: 20140804
  Transmission Date: 20150326
  Serious: Yes (Hospitalization, Other)
  Sender: FDA-Public Use
  Company Number: CA-JNJFOC-20140701370

PATIENT
  Sex: Female
  Weight: 76 kg

DRUGS (16)
  1. IMURAN [Concomitant]
     Active Substance: AZATHIOPRINE
     Route: 048
  2. SYNTHROID [Concomitant]
     Active Substance: LEVOTHYROXINE SODIUM
     Route: 048
  3. SULCRATE [Concomitant]
     Active Substance: SUCRALFATE
     Route: 048
  4. PANTOLOC [Concomitant]
     Active Substance: PANTOPRAZOLE SODIUM
     Route: 048
  5. METHOTREXATE [Concomitant]
     Active Substance: METHOTREXATE
     Route: 058
  6. VITAMIN D3 [Concomitant]
     Active Substance: CHOLECALCIFEROL
     Route: 048
  7. CRESTOR [Concomitant]
     Active Substance: ROSUVASTATIN CALCIUM
     Route: 048
  8. ASAPHEN [Concomitant]
     Active Substance: ASPIRIN
     Route: 048
  9. NAPROSYN [Concomitant]
     Active Substance: NAPROXEN
     Route: 048
  10. FOLIC ACID. [Concomitant]
     Active Substance: FOLIC ACID
     Dosage: TAKE DAILY FOR 6 DAYS OUT OF SEVEN IN A WEEK. OMIT ON THE DAY OF METHOTREXATE INJECTION.
     Route: 048
  11. DICLOFENAC [Concomitant]
     Active Substance: DICLOFENAC
     Route: 061
  12. MULTIVITAMINES [Concomitant]
     Route: 048
  13. VITAMIN D [Concomitant]
     Active Substance: CHOLECALCIFEROL
     Route: 048
  14. REMICADE [Suspect]
     Active Substance: INFLIXIMAB
     Indication: RHEUMATOID ARTHRITIS
     Dosage: AFTER LOADING DOSES AT 0,2 AND 6 WEEKS.
     Route: 042
     Dates: start: 201306
  15. NEXIUM [Concomitant]
     Active Substance: ESOMEPRAZOLE MAGNESIUM
     Route: 048
  16. PENNSAID [Concomitant]
     Active Substance: DICLOFENAC SODIUM
     Route: 061

REACTIONS (2)
  - Neoplasm malignant [Recovering/Resolving]
  - Salivary gland mass [Recovered/Resolved]
